FAERS Safety Report 8831685 (Version 3)
Quarter: 2012Q4

REPORT INFORMATION
  Report Type: Report from Study
  Country: NL (occurrence: NL)
  Receive Date: 20121009
  Receipt Date: 20121130
  Transmission Date: 20130627
  Serious: Yes (Death, Life-Threatening, Hospitalization, Other)
  Sender: FDA-Public Use
  Company Number: NL-009507513-1210NLD002853

PATIENT
  Age: 61 Year
  Sex: Male
  Weight: 61 kg

DRUGS (3)
  1. SIMVASTATIN [Suspect]
     Indication: ACUTE CORONARY SYNDROME
     Dosage: UNK
     Route: 048
     Dates: start: 20080116
  2. METOPROLOL SUCCINATE [Concomitant]
     Dosage: 50 mg, qd
     Route: 048
     Dates: start: 20080101
  3. CARBASPIRIN CALCIUM [Concomitant]
     Dosage: 100 mg, qd
     Route: 048
     Dates: start: 20080101

REACTIONS (1)
  - Pancreatic carcinoma metastatic [Fatal]
